FAERS Safety Report 4946960-1 (Version None)
Quarter: 2006Q1

REPORT INFORMATION
  Report Type: 
  Country: None (occurrence: None)
  Receive Date: 20060317
  Receipt Date: 20060306
  Transmission Date: 20060701
  Serious: Yes (Other)
  Sender: FDA-Public Use
  Company Number: PT-ROCHE-439186

PATIENT
  Sex: Female

DRUGS (2)
  1. ROACCUTAN [Suspect]
     Indication: DRUG USE FOR UNKNOWN INDICATION
     Route: 048
     Dates: start: 20050915
  2. ROACCUTAN [Suspect]
     Route: 048

REACTIONS (2)
  - PERIPHERAL COLDNESS [None]
  - SKIN ULCER [None]
